FAERS Safety Report 7445409-7 (Version None)
Quarter: 2011Q2

REPORT INFORMATION
  Report Type: 
  Country: None (occurrence: None)
  Receive Date: 20110429
  Receipt Date: 20110426
  Transmission Date: 20111010
  Serious: Yes (Life-Threatening)
  Sender: FDA-Public Use
  Company Number: PHHY2011BR35257

PATIENT
  Age: 9 Year
  Sex: Male

DRUGS (1)
  1. RITALIN LA [Suspect]
     Indication: PSYCHOMOTOR HYPERACTIVITY
     Dosage: 10 MG, UNK

REACTIONS (2)
  - FEELING ABNORMAL [None]
  - HEART RATE INCREASED [None]
